FAERS Safety Report 8165079-2 (Version None)
Quarter: 2012Q1

REPORT INFORMATION
  Report Type: 
  Country: None (occurrence: None)
  Receive Date: 20120227
  Receipt Date: 20091002
  Transmission Date: 20120608
  Serious: No
  Sender: FDA-Public Use
  Company Number: 2009BI031950

PATIENT
  Age: 35 Year
  Sex: Female

DRUGS (4)
  1. LYRICA [Concomitant]
     Indication: PAIN
  2. TYSABRI [Suspect]
     Indication: MULTIPLE SCLEROSIS
     Route: 042
     Dates: start: 20060818
  3. HYDROCODONE BITARTRATE [Concomitant]
     Indication: PAIN
  4. LIDODERM [Concomitant]
     Indication: PAIN

REACTIONS (3)
  - HYPOAESTHESIA [None]
  - MUSCULAR WEAKNESS [None]
  - HEADACHE [None]
